FAERS Safety Report 21501056 (Version 1)
Quarter: 2022Q4

REPORT INFORMATION
  Report Type: Spontaneous
  Country: US (occurrence: None)
  Receive Date: 20221025
  Receipt Date: 20221025
  Transmission Date: 20230113
  Serious: No
  Sender: FDA-Public Use
  Company Number: US-Merck Healthcare KGaA-9358031

PATIENT
  Age: 66 Year
  Sex: Male

DRUGS (1)
  1. SEROSTIM [Suspect]
     Active Substance: SOMATROPIN
     Indication: Product used for unknown indication
     Dates: start: 20220701

REACTIONS (2)
  - Musculoskeletal disorder [Unknown]
  - Peripheral swelling [Unknown]
